FAERS Safety Report 17456838 (Version 1)
Quarter: 2020Q1

REPORT INFORMATION
  Report Type: Spontaneous
  Country: GB (occurrence: GB)
  Receive Date: 20200225
  Receipt Date: 20200225
  Transmission Date: 20200409
  Serious: Yes (Other)
  Sender: FDA-Public Use
  Company Number: GB-ROCHE-2555601

PATIENT
  Age: 71 Year
  Sex: Female
  Weight: 62 kg

DRUGS (11)
  1. LANSOPRAZOLE. [Concomitant]
     Active Substance: LANSOPRAZOLE
     Route: 065
     Dates: start: 20190503
  2. DEPO-MEDRONE [Concomitant]
     Active Substance: METHYLPREDNISOLONE
     Dosage: USE AS DIRECTED
     Route: 065
     Dates: start: 20200203, end: 20200204
  3. PIRFENIDONE. [Suspect]
     Active Substance: PIRFENIDONE
     Indication: PRODUCT USED FOR UNKNOWN INDICATION
     Route: 048
     Dates: start: 20190520
  4. ESTRADIOL. [Concomitant]
     Active Substance: ESTRADIOL
     Dosage: APPLY ONCE DAILY FOR 2 WEEKS THEN ONCE TWICE WE...
     Route: 065
     Dates: start: 20160218
  5. PHOLCODINE [Concomitant]
     Active Substance: PHOLCODINE
     Route: 065
     Dates: start: 20191004
  6. PROCHLORPERAZINE. [Concomitant]
     Active Substance: PROCHLORPERAZINE
     Dosage: ONE OR TWO THREE TIMES A DAY
     Route: 065
     Dates: start: 20200114
  7. LIDOCAINE. [Concomitant]
     Active Substance: LIDOCAINE
     Dosage: USE AS DIRECTED
     Route: 065
     Dates: start: 20200203, end: 20200204
  8. HYDROCORTISONE. [Concomitant]
     Active Substance: HYDROCORTISONE
     Dosage: APPLY SPARINGLY TO AFFECTED AREAS
     Route: 065
     Dates: start: 20191129, end: 20191227
  9. VENTOLIN [Concomitant]
     Active Substance: ALBUTEROL SULFATE
     Route: 055
     Dates: start: 20190503
  10. DOXYCYCLINE. [Concomitant]
     Active Substance: DOXYCYCLINE
     Dosage: TWO NOW THEN ONE DAILY - STANDBY MEDICATION
     Route: 065
     Dates: start: 20181228
  11. LAXIDO [Concomitant]
     Active Substance: POLYETHYLENE GLYCOL 3350\POTASSIUM CHLORIDE\SODIUM BICARBONATE\SODIUM CHLORIDE
     Indication: CONSTIPATION
     Dosage: USE ONE SACHET ONCE OR TWICE DAILY
     Route: 065
     Dates: start: 20181129

REACTIONS (1)
  - Drug-induced liver injury [Recovered/Resolved]

NARRATIVE: CASE EVENT DATE: 20190520
